FAERS Safety Report 11055407 (Version 1)
Quarter: 2015Q2

REPORT INFORMATION
  Report Type: Spontaneous
  Country: US (occurrence: None)
  Receive Date: 20150421
  Receipt Date: 20150421
  Transmission Date: 20150821
  Serious: No
  Sender: FDA-Public Use
  Company Number: None

PATIENT
  Age: 60 Year
  Sex: Male
  Weight: 69.95 kg

DRUGS (2)
  1. SOLU-MEDROL [Suspect]
     Active Substance: METHYLPREDNISOLONE SODIUM SUCCINATE
     Route: 042
     Dates: start: 20131111, end: 20131115
  2. ALEMTUZUMAB [Suspect]
     Active Substance: ALEMTUZUMAB
     Indication: MULTIPLE SCLEROSIS
     Route: 042
     Dates: start: 20131111, end: 20131115

REACTIONS (7)
  - Fall [None]
  - Speech disorder [None]
  - Aggression [None]
  - Pain in extremity [None]
  - Homicidal ideation [None]
  - Injury [None]
  - Urinary incontinence [None]

NARRATIVE: CASE EVENT DATE: 20150409
